FAERS Safety Report 20003824 (Version 3)
Quarter: 2022Q1

REPORT INFORMATION
  Report Type: Spontaneous
  Country: JP (occurrence: JP)
  Receive Date: 20211028
  Receipt Date: 20220114
  Transmission Date: 20220423
  Serious: Yes (Hospitalization, Other)
  Sender: FDA-Public Use
  Company Number: JP-AMGEN-JPNSP2021166450

PATIENT
  Age: 74 Year
  Sex: Female

DRUGS (17)
  1. EVENITY [Suspect]
     Active Substance: ROMOSOZUMAB-AQQG
     Indication: Osteoporosis
     Dosage: 210 MILLIGRAM
     Route: 058
     Dates: end: 202007
  2. EVENITY [Suspect]
     Active Substance: ROMOSOZUMAB-AQQG
     Dosage: 210 MILLIGRAM
     Route: 058
     Dates: start: 20210731, end: 2021
  3. DENOSUMAB [Suspect]
     Active Substance: DENOSUMAB
     Indication: Product used for unknown indication
     Dosage: 60 MILLIGRAM, QD
     Route: 065
     Dates: start: 20201231, end: 20210630
  4. FORTEO [Concomitant]
     Active Substance: TERIPARATIDE
     Dosage: 600 MICROGRAM, QD
     Dates: start: 20210831
  5. NADIC [Concomitant]
  6. LANSOPRAZOLE [Concomitant]
     Active Substance: LANSOPRAZOLE
  7. KOUJIN [Concomitant]
     Dosage: POWDER
  8. SERTRALINE HYDROCHLORIDE [Concomitant]
     Active Substance: SERTRALINE HYDROCHLORIDE
  9. RILMAZAFONE HYDROCHLORIDE [Concomitant]
     Active Substance: RILMAZAFONE HYDROCHLORIDE
  10. CINAL [ASCORBIC ACID;CALCIUM PANTOTHENATE] [Concomitant]
  11. VITANEURIN [FURSULTIAMINE HYDROCHLORIDE;HYDROXOCOBALAMIN ACETATE;PYRID [Concomitant]
  12. CALCIUM ASPARTATE [Concomitant]
     Active Substance: CALCIUM ASPARTATE
  13. HERBALS [Concomitant]
     Active Substance: HERBALS
  14. ATENOLOL [Concomitant]
     Active Substance: ATENOLOL
  15. ALFACALCIDOL [Concomitant]
     Active Substance: ALFACALCIDOL
  16. NIFEDIPINE [Concomitant]
     Active Substance: NIFEDIPINE
  17. VALSARTAN [Concomitant]
     Active Substance: VALSARTAN

REACTIONS (1)
  - Femur fracture [Recovered/Resolved]

NARRATIVE: CASE EVENT DATE: 20210131
